FAERS Safety Report 8834839 (Version 2)
Quarter: 2013Q1

REPORT INFORMATION
  Report Type: Spontaneous
  Country: NL (occurrence: None)
  Receive Date: 20121009
  Receipt Date: 20121106
  Transmission Date: 20140127
  Serious: Yes (Disabling, Other)
  Sender: FDA-Public Use
  Company Number: NGX_01383_2012

PATIENT
  Age: 61 Year
  Sex: Male

DRUGS (3)
  1. QUTENZA [Suspect]
     Indication: NEURALGIA
     Dosage: 1 PATCH EVERY 3 MONTHS
     Route: 061
     Dates: start: 20120813, end: 20120813
  2. QUTENZA [Suspect]
     Indication: PAIN
     Dosage: 1 PATCH EVERY 3 MONTHS
     Route: 061
     Dates: start: 20120813, end: 20120813
  3. OXAZEPAM [Concomitant]

REACTIONS (7)
  - Gait disturbance [None]
  - Dysuria [None]
  - Neuralgia [None]
  - Condition aggravated [None]
  - Fall [None]
  - Confusional state [None]
  - Limb injury [None]
